FAERS Safety Report 18021905 (Version 2)
Quarter: 2020Q3

REPORT INFORMATION
  Report Type: Spontaneous
  Country: DE (occurrence: DE)
  Receive Date: 20200714
  Receipt Date: 20200720
  Transmission Date: 20201103
  Serious: Yes (Hospitalization)
  Sender: FDA-Public Use
  Company Number: DE-PFIZER INC-2020266774

PATIENT
  Age: 50 Year
  Sex: Female

DRUGS (2)
  1. RAMIPRIL. [Suspect]
     Active Substance: RAMIPRIL
     Dosage: 2.5 MG, 1X/DAY
  2. FINIC [Suspect]
     Active Substance: DIENOGEST\ETHINYL ESTRADIOL
     Dosage: 1 DF, 1X/DAY

REACTIONS (3)
  - Gait disturbance [Unknown]
  - Hypoaesthesia [Unknown]
  - Dizziness [Unknown]
